FAERS Safety Report 9688607 (Version 1)
Quarter: 2013Q4

REPORT INFORMATION
  Report Type: Spontaneous
  Country: CA (occurrence: None)
  Receive Date: 20131113
  Receipt Date: 20131113
  Transmission Date: 20140711
  Serious: Yes (Hospitalization, Other)
  Sender: FDA-Public Use
  Company Number: FK201304872

PATIENT
  Age: 52 Year
  Sex: Female
  Weight: 79 kg

DRUGS (7)
  1. CEFAZOLIN [Suspect]
     Indication: PRODUCT USED FOR UNKNOWN INDICATION
     Dosage: INTRAMUSCULAR
     Route: 030
  2. PROPOFOL [Suspect]
     Indication: PRODUCT USED FOR UNKNOWN INDICATION
  3. ROCURONIUM BROMIDE [Suspect]
     Indication: PRODUCT USED FOR UNKNOWN INDICATION
     Dosage: INTRAVENOUS (NOT OTHERWISE INDICATED)
  4. ACETAMINOPHEN [Concomitant]
  5. PROBIOTIC [Concomitant]
  6. RANITIDINE [Concomitant]
  7. ZOPICLONE [Concomitant]

REACTIONS (6)
  - Blood pressure decreased [None]
  - Flushing [None]
  - Heart rate increased [None]
  - Lip swelling [None]
  - Oedema peripheral [None]
  - Swollen tongue [None]
